FAERS Safety Report 6764391-9 (Version None)
Quarter: 2010Q2

REPORT INFORMATION
  Report Type: 
  Country: None (occurrence: None)
  Receive Date: 20100610
  Receipt Date: 20100602
  Transmission Date: 20101027
  Serious: Yes (Hospitalization)
  Sender: FDA-Public Use
  Company Number: FR-PFIZER INC-2010069727

PATIENT
  Age: 39 Year
  Sex: Male

DRUGS (2)
  1. TAHOR [Suspect]
     Dosage: UNK
     Dates: start: 20100223, end: 20100305
  2. PLAVIX [Concomitant]
     Dosage: UNK
     Dates: start: 20100223

REACTIONS (1)
  - CYTOLYTIC HEPATITIS [None]
